FAERS Safety Report 22321555 (Version 3)
Quarter: 2023Q2

REPORT INFORMATION
  Report Type: Report from Study
  Country: ES (occurrence: ES)
  Receive Date: 20230515
  Receipt Date: 20230607
  Transmission Date: 20230721
  Serious: Yes (Hospitalization)
  Sender: FDA-Public Use
  Company Number: ES-ABBVIE-4765667

PATIENT
  Age: 80 Year
  Sex: Male
  Weight: 64 kg

DRUGS (2)
  1. CARBIDOPA\LEVODOPA [Suspect]
     Active Substance: CARBIDOPA\LEVODOPA
     Indication: Parkinson^s disease
     Route: 050
     Dates: start: 20150624, end: 20230518
  2. CARBIDOPA\LEVODOPA [Suspect]
     Active Substance: CARBIDOPA\LEVODOPA
     Route: 050
     Dates: start: 202305

REACTIONS (3)
  - Fall [Recovered/Resolved]
  - Eye disorder [Unknown]
  - Skin disorder [Unknown]

NARRATIVE: CASE EVENT DATE: 20230509
